FAERS Safety Report 19993340 (Version 19)
Quarter: 2023Q4

REPORT INFORMATION
  Report Type: Spontaneous
  Country: US (occurrence: US)
  Receive Date: 20211025
  Receipt Date: 20231106
  Transmission Date: 20240109
  Serious: No
  Sender: FDA-Public Use
  Company Number: US-PFIZER INC-202101392758

PATIENT
  Age: 69 Year
  Sex: Female

DRUGS (9)
  1. IBRANCE [Suspect]
     Active Substance: PALBOCICLIB
     Indication: Breast cancer female
     Dosage: 125 MG
  2. IBRANCE [Suspect]
     Active Substance: PALBOCICLIB
     Dosage: 75 MG, CYCLIC (DAILY WITH OR WITHOUT FOOD ON DAYS 1-14 OF 28 DAYS CYCLE)
     Route: 048
     Dates: start: 20220323
  3. IBRANCE [Suspect]
     Active Substance: PALBOCICLIB
     Dosage: 75 MG, CYCLIC (DAILY WITH OR WITHOUT FOOD ON DAYS 1-14 OF 28 DAY CYCLE)
     Route: 048
     Dates: start: 20220712
  4. IBRANCE [Suspect]
     Active Substance: PALBOCICLIB
     Dosage: 75 MG, CYCLIC (DAILY TAKE WITH OR WITHOUT FOOD ON DAYS 1-14 OF 28 DAYS CYCLE)
     Route: 048
  5. IBRANCE [Suspect]
     Active Substance: PALBOCICLIB
     Dosage: 125 MG
  6. IBRANCE [Suspect]
     Active Substance: PALBOCICLIB
     Dosage: 100 MG
  7. IBRANCE [Suspect]
     Active Substance: PALBOCICLIB
     Dosage: 75 MG, 14 DAYS ON AND 14 DAYS OFF
  8. IBRANCE [Suspect]
     Active Substance: PALBOCICLIB
     Dosage: 75 MG, DAILY ON DAYS 1-7 AND 15-21 OF 28-DAY CYCLE
     Route: 048
  9. IBRANCE [Suspect]
     Active Substance: PALBOCICLIB
     Dosage: 75 MG, 1 TABLET DAILY TAKE WITH OR WITHOUT FOOD ON DAYS 1-14 OF 28 DAY CYCLE
     Route: 048

REACTIONS (9)
  - Tinnitus [Unknown]
  - Weight increased [Unknown]
  - Neoplasm progression [Unknown]
  - Headache [Unknown]
  - Alopecia [Unknown]
  - Dry eye [Unknown]
  - Sinusitis [Unknown]
  - White blood cell count decreased [Unknown]
  - Off label use [Unknown]

NARRATIVE: CASE EVENT DATE: 20220323
